FAERS Safety Report 5813787-8 (Version None)
Quarter: 2008Q3

REPORT INFORMATION
  Report Type: 
  Country: None (occurrence: None)
  Receive Date: 20080717
  Receipt Date: 20080710
  Transmission Date: 20090109
  Serious: Yes (Hospitalization)
  Sender: FDA-Public Use
  Company Number: FR-AVENTIS-200812661FR

PATIENT
  Age: 62 Year
  Sex: Female

DRUGS (9)
  1. FLAGYL [Suspect]
     Route: 048
     Dates: start: 20080430, end: 20080513
  2. FLAGYL [Suspect]
     Route: 048
     Dates: start: 20080430, end: 20080513
  3. FLAGYL [Suspect]
     Route: 048
     Dates: start: 20080430, end: 20080513
  4. ZYVOXID [Suspect]
     Route: 042
     Dates: start: 20080430, end: 20080513
  5. ZYVOXID [Suspect]
     Route: 042
     Dates: start: 20080430, end: 20080513
  6. ZYVOXID [Suspect]
     Route: 042
     Dates: start: 20080430, end: 20080513
  7. CIFLOX                             /00697201/ [Suspect]
     Route: 042
     Dates: start: 20080430, end: 20080513
  8. CIFLOX                             /00697201/ [Suspect]
     Route: 042
     Dates: start: 20080430, end: 20080513
  9. CIFLOX                             /00697201/ [Suspect]
     Route: 042
     Dates: start: 20080430, end: 20080513

REACTIONS (2)
  - ANAEMIA [None]
  - THROMBOCYTOPENIA [None]
